FAERS Safety Report 7976888-4 (Version None)
Quarter: 2011Q4

REPORT INFORMATION
  Report Type: 
  Country: None (occurrence: None)
  Receive Date: 20111213
  Receipt Date: 20111109
  Transmission Date: 20120403
  Serious: No
  Sender: FDA-Public Use
  Company Number: US-AMGEN-USASP2011058970

PATIENT
  Age: 69 Year
  Sex: Male

DRUGS (3)
  1. ENBREL [Suspect]
     Indication: RHEUMATOID ARTHRITIS
     Dosage: 50 MG, QWK
     Dates: start: 20110101
  2. TREXALL [Concomitant]
     Dosage: 8 MG, QWK
     Dates: start: 20080101
  3. PREDNISONE TAB [Concomitant]
     Dosage: UNK

REACTIONS (2)
  - CONTUSION [None]
  - RASH [None]
